FAERS Safety Report 13707224 (Version 1)
Quarter: 2017Q2

REPORT INFORMATION
  Report Type: Spontaneous
  Country: US (occurrence: US)
  Receive Date: 20170630
  Receipt Date: 20170630
  Transmission Date: 20170830
  Serious: No
  Sender: FDA-Public Use
  Company Number: US-PFIZER INC-2017278949

PATIENT
  Sex: Female

DRUGS (1)
  1. SODIUM BICARBONATE. [Suspect]
     Active Substance: SODIUM BICARBONATE
     Indication: UTERINE DILATION AND CURETTAGE

REACTIONS (5)
  - Infection [Unknown]
  - Chills [Unknown]
  - Pain [Unknown]
  - Abdominal pain [Unknown]
  - Pyrexia [Unknown]
